FAERS Safety Report 5745558-5 (Version None)
Quarter: 2008Q2

REPORT INFORMATION
  Report Type: 
  Country: None (occurrence: None)
  Receive Date: 20080519
  Receipt Date: 20080321
  Transmission Date: 20081010
  Serious: No
  Sender: FDA-Public Use
  Company Number: TPA2008A00207

PATIENT
  Age: 29 Year
  Sex: Female
  Weight: 68.0396 kg

DRUGS (4)
  1. ROZEREM [Suspect]
     Indication: INSOMNIA
     Dosage: 8 MG, QHS, PER ORAL
     Route: 048
     Dates: start: 20080212, end: 20080219
  2. REGLAN [Concomitant]
  3. PROZAC [Concomitant]
  4. PREVACID [Concomitant]

REACTIONS (2)
  - HEADACHE [None]
  - PHOTOPHOBIA [None]
